FAERS Safety Report 6163248-4 (Version None)
Quarter: 2009Q2

REPORT INFORMATION
  Report Type: 
  Country: None (occurrence: None)
  Receive Date: 20090422
  Receipt Date: 20080401
  Transmission Date: 20091009
  Serious: No
  Sender: FDA-Public Use
  Company Number: A0716897A

PATIENT
  Age: 58 Year
  Sex: Female
  Weight: 54.5 kg

DRUGS (1)
  1. COMPAZINE [Suspect]
     Indication: NAUSEA
     Route: 065

REACTIONS (1)
  - DRUG INEFFECTIVE [None]
